FAERS Safety Report 25720795 (Version 1)
Quarter: 2025Q3

REPORT INFORMATION
  Report Type: Spontaneous
  Country: US (occurrence: US)
  Receive Date: 20250825
  Receipt Date: 20250825
  Transmission Date: 20251021
  Serious: Yes (Other)
  Sender: DR REDDYS
  Company Number: US-MLMSERVICE-20250811-PI611723-00175-2

PATIENT
  Age: 53 Year

DRUGS (1)
  1. HEPARIN [Suspect]
     Active Substance: HEPARIN SODIUM
     Indication: Product used for unknown indication

REACTIONS (4)
  - Heparin-induced thrombocytopenia [Unknown]
  - Portal vein thrombosis [Unknown]
  - Hepatic artery thrombosis [Unknown]
  - Transplant failure [Unknown]
